FAERS Safety Report 21745580 (Version 1)
Quarter: 2022Q4

REPORT INFORMATION
  Report Type: Spontaneous
  Country: US (occurrence: US)
  Receive Date: 20221219
  Receipt Date: 20221219
  Transmission Date: 20230112
  Serious: Yes (Hospitalization)
  Sender: FDA-Public Use
  Company Number: US-BRISTOL-MYERS SQUIBB COMPANY-2022-152855

PATIENT
  Age: 77 Year
  Sex: Female
  Weight: 53.9 kg

DRUGS (4)
  1. REVLIMID [Suspect]
     Active Substance: LENALIDOMIDE
     Indication: Plasma cell myeloma
     Dosage: DOSE : 15MG;     FREQ : DAILY FOR 3 WEEKS THEN ONE WEEK OFF
     Route: 048
     Dates: start: 20190930
  2. CRANBERRY [Concomitant]
     Active Substance: CRANBERRY
     Indication: Product used for unknown indication
  3. LUTEIN [Concomitant]
     Active Substance: LUTEIN
     Indication: Product used for unknown indication
  4. ERGOCALCIFEROL [Concomitant]
     Active Substance: ERGOCALCIFEROL
     Indication: Product used for unknown indication

REACTIONS (3)
  - Cardiac disorder [Unknown]
  - Blood potassium decreased [Unknown]
  - Blood magnesium decreased [Unknown]
